FAERS Safety Report 5862738-9 (Version None)
Quarter: 2008Q3

REPORT INFORMATION
  Report Type: 
  Country: None (occurrence: None)
  Receive Date: 20080827
  Receipt Date: 20080827
  Transmission Date: 20090109
  Serious: Yes (Hospitalization, Other)
  Sender: FDA-Public Use
  Company Number: None

PATIENT
  Age: 60 Year
  Sex: Female
  Weight: 90.2658 kg

DRUGS (1)
  1. TRANSDERM SCOP [Suspect]
     Indication: PROPHYLAXIS AGAINST MOTION SICKNESS
     Dosage: 1.5 MG EVERY 3 DAYS TRANSDERMAL
     Route: 062
     Dates: start: 20080414, end: 20080419

REACTIONS (7)
  - BLOOD PRESSURE INCREASED [None]
  - DYSPNOEA [None]
  - HEART RATE INCREASED [None]
  - JOINT SWELLING [None]
  - MACULAR OEDEMA [None]
  - OEDEMA PERIPHERAL [None]
  - VISUAL IMPAIRMENT [None]
